FAERS Safety Report 9772265 (Version 1)
Quarter: 2013Q4

REPORT INFORMATION
  Report Type: Spontaneous
  Country: DE (occurrence: DE)
  Receive Date: 20131219
  Receipt Date: 20131219
  Transmission Date: 20140711
  Serious: Yes (Hospitalization, Other)
  Sender: FDA-Public Use
  Company Number: DE-ASTELLAS-2013EU011076

PATIENT
  Age: 86 Year
  Sex: Male
  Weight: 73 kg

DRUGS (5)
  1. XTANDI [Suspect]
     Indication: PROSTATE CANCER
     Dosage: 160 MG, UID/QD
     Route: 048
     Dates: start: 20131113
  2. XTANDI [Suspect]
     Dosage: 160 MG, UID/QD
     Route: 048
     Dates: start: 20131114, end: 20131205
  3. XGEVA [Concomitant]
     Indication: METASTASES TO BONE
     Dosage: 120 MG, OTHER
     Route: 058
     Dates: start: 20130123
  4. TRENANTONE [Concomitant]
     Indication: CEREBRAL ATROPHY
     Dosage: 10.72 MG, OTHER
     Route: 058
     Dates: start: 2007
  5. TRENANTONE [Concomitant]
     Dosage: 10.72 MG, OTHER
     Route: 058
     Dates: start: 2008

REACTIONS (9)
  - Cardiac failure [Not Recovered/Not Resolved]
  - Gait disturbance [Not Recovered/Not Resolved]
  - Vertigo [Not Recovered/Not Resolved]
  - Nausea [Not Recovered/Not Resolved]
  - Vomiting [Not Recovered/Not Resolved]
  - Hypokalaemia [Unknown]
  - Constipation [Unknown]
  - Faecal incontinence [Unknown]
  - Dizziness [Unknown]
